FAERS Safety Report 7030807-6 (Version None)
Quarter: 2010Q4

REPORT INFORMATION
  Report Type: 
  Country: None (occurrence: None)
  Receive Date: 20101006
  Receipt Date: 20100924
  Transmission Date: 20110411
  Serious: No
  Sender: FDA-Public Use
  Company Number: US-PFIZER INC-2010121791

PATIENT
  Sex: Female

DRUGS (3)
  1. LYRICA [Suspect]
     Indication: PAIN
     Dosage: 25 MG, 2X/DAY
     Route: 048
     Dates: start: 20100901, end: 20100922
  2. CARDIZEM [Concomitant]
     Indication: PALPITATIONS
     Dosage: 180 MG, DAILY
     Route: 048
  3. ACETYLSALICYLIC ACID [Concomitant]
     Dosage: 325 MG, DAILY
     Route: 048

REACTIONS (5)
  - DYSKINESIA [None]
  - GASTROINTESTINAL MOTILITY DISORDER [None]
  - MICTURITION DISORDER [None]
  - MUSCLE TWITCHING [None]
  - OEDEMA PERIPHERAL [None]
